FAERS Safety Report 16113119 (Version 1)
Quarter: 2019Q1

REPORT INFORMATION
  Report Type: Spontaneous
  Country: SE (occurrence: SE)
  Receive Date: 20190325
  Receipt Date: 20190325
  Transmission Date: 20190418
  Serious: Yes (Hospitalization)
  Sender: FDA-Public Use
  Company Number: SE-PFIZER INC-2019119139

PATIENT
  Age: 74 Year
  Sex: Female

DRUGS (5)
  1. OVESTERIN [Concomitant]
     Active Substance: ESTRIOL
     Dosage: 1 MG, WEEKLY
     Route: 067
     Dates: start: 20180122
  2. CYTOTEC [Suspect]
     Active Substance: MISOPROSTOL
     Dosage: UNK (TIMES 2)
     Dates: start: 20190207, end: 20190207
  3. CITALOPRAM [Concomitant]
     Active Substance: CITALOPRAM HYDROBROMIDE
     Dosage: 20 MG, 1X/DAY
     Route: 048
     Dates: start: 20180322
  4. BUFOMIX EASYHALER [Concomitant]
     Active Substance: BUDESONIDE\FORMOTEROL FUMARATE
     Dosage: 2 DF, 1X/DAY
     Route: 055
     Dates: start: 20170419
  5. BUVENTOL EASYHALER [Concomitant]
     Active Substance: ALBUTEROL SULFATE
     Dosage: 1 DF, AS NEEDED (1 INHALATION AS NEEDED, MAX 8/DAY)
     Route: 055
     Dates: start: 20170419

REACTIONS (8)
  - Hypertension [Recovered/Resolved]
  - Nausea [Recovered/Resolved]
  - Tremor [Recovered/Resolved]
  - Vomiting [Recovered/Resolved]
  - Chills [Recovered/Resolved]
  - Tachycardia [Recovered/Resolved]
  - Pyrexia [Recovered/Resolved]
  - Diarrhoea [Recovered/Resolved]

NARRATIVE: CASE EVENT DATE: 20190208
